FAERS Safety Report 5738434-5 (Version None)
Quarter: 2008Q2

REPORT INFORMATION
  Report Type: 
  Country: None (occurrence: None)
  Receive Date: 20080513
  Receipt Date: 20080430
  Transmission Date: 20081010
  Serious: Yes (Death)
  Sender: FDA-Public Use
  Company Number: 2008AL002840

PATIENT
  Age: 85 Year
  Sex: Female
  Weight: 135 kg

DRUGS (5)
  1. DIGOXIN [Suspect]
     Dosage: 0.25MG DAILY PO
     Route: 048
  2. VASOTEC [Concomitant]
  3. K-DUR [Concomitant]
  4. LASIX [Concomitant]
  5. ADVAIR DISKUS 100/50 [Concomitant]

REACTIONS (5)
  - ABDOMINAL PAIN [None]
  - DYSGEUSIA [None]
  - ELECTROCARDIOGRAM ABNORMAL [None]
  - FATIGUE [None]
  - FLUID RETENTION [None]
